FAERS Safety Report 11173962 (Version 1)
Quarter: 2015Q2

REPORT INFORMATION
  Report Type: Spontaneous
  Country: IT (occurrence: None)
  Receive Date: 20150605
  Receipt Date: 20150605
  Transmission Date: 20150821
  Serious: Yes (Other)
  Sender: FDA-Public Use
  Company Number: IT-2015VAL000351

PATIENT

DRUGS (14)
  1. TRETINOIN. [Suspect]
     Active Substance: TRETINOIN
     Indication: ACUTE MYELOID LEUKAEMIA
     Route: 048
  2. THIOGUANINE [Suspect]
     Active Substance: THIOGUANINE
     Indication: ACUTE MYELOID LEUKAEMIA
  3. THIOGUANINE [Suspect]
     Active Substance: THIOGUANINE
     Indication: MYELODYSPLASTIC SYNDROME
  4. CALCITRIOL. [Suspect]
     Active Substance: CALCITRIOL
     Indication: ACUTE MYELOID LEUKAEMIA
  5. TRETINOIN. [Suspect]
     Active Substance: TRETINOIN
     Indication: MYELODYSPLASTIC SYNDROME
     Route: 048
  6. ISOTRETINOIN (ISOTRETINOIN) [Suspect]
     Active Substance: ISOTRETINOIN
     Indication: MYELODYSPLASTIC SYNDROME
  7. MERCAPTOPURINE (MERCAPTOPURINE) [Suspect]
     Active Substance: MERCAPTOPURINE
     Indication: ACUTE MYELOID LEUKAEMIA
     Route: 048
  8. ISOTRETINOIN (ISOTRETINOIN) [Suspect]
     Active Substance: ISOTRETINOIN
     Indication: ACUTE MYELOID LEUKAEMIA
  9. CYTOSINE ARABINOSIDE [Suspect]
     Active Substance: CYTARABINE
     Indication: ACUTE MYELOID LEUKAEMIA
     Route: 058
  10. CYTARABINE (CYTARABINE) [Suspect]
     Active Substance: CYTARABINE
     Indication: ACUTE MYELOID LEUKAEMIA
  11. MERCAPTOPURINE (MERCAPTOPURINE) [Suspect]
     Active Substance: MERCAPTOPURINE
     Indication: MYELODYSPLASTIC SYNDROME
     Route: 048
  12. CALCITRIOL. [Suspect]
     Active Substance: CALCITRIOL
     Indication: MYELODYSPLASTIC SYNDROME
  13. CYTARABINE (CYTARABINE) [Suspect]
     Active Substance: CYTARABINE
     Indication: MYELODYSPLASTIC SYNDROME
  14. CYTOSINE ARABINOSIDE [Suspect]
     Active Substance: CYTARABINE
     Indication: MYELODYSPLASTIC SYNDROME
     Route: 058

REACTIONS (7)
  - Dry mouth [None]
  - Dry skin [None]
  - Vomiting [None]
  - Nausea [None]
  - Malaise [None]
  - Depression [None]
  - Toxicity to various agents [None]
